FAERS Safety Report 7239560-4 (Version None)
Quarter: 2011Q1

REPORT INFORMATION
  Report Type: 
  Country: None (occurrence: None)
  Receive Date: 20110121
  Receipt Date: 20110112
  Transmission Date: 20110831
  Serious: Yes (Hospitalization)
  Sender: FDA-Public Use
  Company Number: ES-GENENTECH-312431

PATIENT
  Age: 62 Year
  Sex: Male

DRUGS (3)
  1. MABTHERA [Suspect]
     Indication: CHRONIC LYMPHOCYTIC LEUKAEMIA
     Dosage: UNK
     Route: 042
     Dates: start: 20080101, end: 20100707
  2. INFLUENZA VACCINE [Concomitant]
     Indication: IMMUNISATION
     Dosage: .5 ML, SINGLE
     Dates: start: 20101005, end: 20101005
  3. ALOPURINOL [Concomitant]
     Indication: PRODUCT USED FOR UNKNOWN INDICATION
     Dosage: UNK

REACTIONS (3)
  - AGRANULOCYTOSIS [None]
  - ODYNOPHAGIA [None]
  - PYREXIA [None]
